FAERS Safety Report 9511742 (Version 1)
Quarter: 2013Q3

REPORT INFORMATION
  Report Type: Spontaneous
  Country: US (occurrence: None)
  Receive Date: 20130909
  Receipt Date: 20130909
  Transmission Date: 20140515
  Serious: Yes (Life-Threatening, Hospitalization, Disabling, Other)
  Sender: FDA-Public Use
  Company Number: None

PATIENT
  Age: 67 Year
  Sex: Male
  Weight: 81.65 kg

DRUGS (1)
  1. ACTONEL [Suspect]
     Indication: OSTEOPENIA
     Dosage: TOOK ONLY 1 PILL

REACTIONS (7)
  - Pain [None]
  - Dizziness [None]
  - Asthenia [None]
  - Nausea [None]
  - Haematochezia [None]
  - Haematemesis [None]
  - Gastrointestinal haemorrhage [None]
